FAERS Safety Report 7965589-4 (Version None)
Quarter: 2011Q4

REPORT INFORMATION
  Report Type: 
  Country: None (occurrence: None)
  Receive Date: 20111206
  Receipt Date: 20111206
  Transmission Date: 20120403
  Serious: Yes (Hospitalization)
  Sender: FDA-Public Use
  Company Number: None

PATIENT
  Age: 89 Year
  Sex: Female
  Weight: 59.2851 kg

DRUGS (6)
  1. LEUCOVORIN CALCIUM [Concomitant]
  2. REGORAFENIB OR PLACEBO [Suspect]
     Indication: COLON CANCER
     Dosage: 160 MG PO QD
     Route: 048
     Dates: start: 20111126, end: 20111130
  3. FLUOROURACIL [Suspect]
     Indication: COLON CANCER METASTATIC
     Dosage: 4050MG OVER 46 HR. Q2WK
     Dates: start: 20111123, end: 20111125
  4. FLUOROURACIL [Concomitant]
  5. OXALIPLATIN [Concomitant]
  6. CAMPTOSAR [Suspect]
     Indication: COLON CANCER METASTATIC
     Dosage: 300MG OVER 90 MINUTES Q2W
     Dates: start: 20111123

REACTIONS (5)
  - ULCER [None]
  - ERYTHEMA [None]
  - MUCOSAL INFLAMMATION [None]
  - OROPHARYNGEAL PAIN [None]
  - INADEQUATE ANALGESIA [None]
